FAERS Safety Report 7032428-8 (Version None)
Quarter: 2010Q4

REPORT INFORMATION
  Report Type: 
  Country: None (occurrence: None)
  Receive Date: 20101007
  Receipt Date: 20100928
  Transmission Date: 20110411
  Serious: Yes (Hospitalization)
  Sender: FDA-Public Use
  Company Number: JP-JNJFOC-20101000850

PATIENT
  Age: 22 Year
  Sex: Female

DRUGS (2)
  1. CRAVIT [Suspect]
     Indication: COLITIS
     Route: 065
  2. STEROIDS NOS [Concomitant]

REACTIONS (2)
  - LEUKOCYTOCLASTIC VASCULITIS [None]
  - PURPURA FULMINANS [None]
